FAERS Safety Report 21150195 (Version 1)
Quarter: 2022Q3

REPORT INFORMATION
  Report Type: Spontaneous
  Country: FR (occurrence: FR)
  Receive Date: 20220729
  Receipt Date: 20220729
  Transmission Date: 20221027
  Serious: Yes (Hospitalization)
  Sender: FDA-Public Use
  Company Number: None

PATIENT
  Age: 35 Year
  Sex: Female
  Weight: 56 kg

DRUGS (1)
  1. NEXPLANON [Suspect]
     Active Substance: ETONOGESTREL
     Indication: Contraceptive implant
     Dosage: 1 DOSAGE FORM
     Route: 058
     Dates: start: 20220706

REACTIONS (2)
  - Implantation complication [Not Recovered/Not Resolved]
  - Peripheral nerve lesion [Not Recovered/Not Resolved]

NARRATIVE: CASE EVENT DATE: 20220706
